FAERS Safety Report 7215988-3 (Version None)
Quarter: 2011Q1

REPORT INFORMATION
  Report Type: 
  Country: None (occurrence: None)
  Receive Date: 20110107
  Receipt Date: 20101224
  Transmission Date: 20110831
  Serious: Yes (Other)
  Sender: FDA-Public Use
  Company Number: PHHY2010US88161

PATIENT
  Age: 76 Year

DRUGS (3)
  1. FLUCONAZOLE [Suspect]
     Indication: COCCIDIOIDOMYCOSIS
     Dosage: 1200 MG, DAILY
  2. FLUCONAZOLE [Suspect]
     Dosage: 1000 MG, DAILY
  3. FLUCONAZOLE [Suspect]
     Dosage: 400 MG, DAILY

REACTIONS (9)
  - FATIGUE [None]
  - CHOROIDITIS [None]
  - RETINAL HAEMORRHAGE [None]
  - VISUAL ACUITY REDUCED [None]
  - APPETITE DISORDER [None]
  - CYSTOID MACULAR OEDEMA [None]
  - CHORIORETINAL SCAR [None]
  - HEADACHE [None]
  - RETINAL VASCULAR DISORDER [None]
